FAERS Safety Report 9367047 (Version 1)
Quarter: 2013Q2

REPORT INFORMATION
  Report Type: Spontaneous
  Country: US (occurrence: US)
  Receive Date: 20130625
  Receipt Date: 20130625
  Transmission Date: 20140414
  Serious: Yes (Other)
  Sender: FDA-Public Use
  Company Number: US-ASTRAZENECA-2013SE46948

PATIENT
  Sex: Female

DRUGS (3)
  1. OMEPRAZOLE [Suspect]
     Route: 048
     Dates: end: 2003
  2. OMEPRAZOLE [Suspect]
     Route: 048
     Dates: end: 20130613
  3. DEXILANT [Concomitant]

REACTIONS (4)
  - Haematemesis [Unknown]
  - Aphagia [Unknown]
  - Regurgitation [Unknown]
  - Diarrhoea [Unknown]
